FAERS Safety Report 5157192-9 (Version None)
Quarter: 2006Q4

REPORT INFORMATION
  Report Type: 
  Country: None (occurrence: None)
  Receive Date: 20061109
  Receipt Date: 20061101
  Transmission Date: 20070319
  Serious: Yes (Death)
  Sender: FDA-Public Use
  Company Number: 200610698

PATIENT
  Age: 73 Year
  Sex: Female

DRUGS (5)
  1. CARIMUNE [Suspect]
     Indication: PARAPROTEINAEMIA
     Dosage: SEE IMAGE, IV
     Route: 042
     Dates: start: 20060907, end: 20060907
  2. CARIMUNE [Suspect]
     Indication: PARAPROTEINAEMIA
     Dosage: SEE IMAGE, IV
     Route: 042
     Dates: start: 20060908, end: 20060908
  3. CARIMUNE [Suspect]
     Indication: PARAPROTEINAEMIA
     Dosage: SEE IMAGE, IV
     Route: 042
     Dates: start: 20060909, end: 20060909
  4. CARIMUNE [Suspect]
  5. . [Concomitant]

REACTIONS (6)
  - ACUTE RESPIRATORY DISTRESS SYNDROME [None]
  - OVARIAN CANCER METASTATIC [None]
  - PNEUMONIA ASPIRATION [None]
  - RESPIRATORY DISTRESS [None]
  - TRANSFUSION-RELATED ACUTE LUNG INJURY [None]
  - TRANSFUSION-RELATED CIRCULATORY OVERLOAD [None]
